FAERS Safety Report 6292869-3 (Version None)
Quarter: 2009Q3

REPORT INFORMATION
  Report Type: 
  Country: None (occurrence: None)
  Receive Date: 20090731
  Receipt Date: 20090721
  Transmission Date: 20100115
  Serious: Yes (Other)
  Sender: FDA-Public Use
  Company Number: PHEH2009US08339

PATIENT
  Sex: Female

DRUGS (1)
  1. EXJADE [Suspect]
     Dosage: 1500 MG DAILY
     Route: 048

REACTIONS (3)
  - ABDOMINAL PAIN UPPER [None]
  - NEPHROLITHIASIS [None]
  - SERUM FERRITIN DECREASED [None]
